FAERS Safety Report 20198960 (Version 3)
Quarter: 2022Q1

REPORT INFORMATION
  Report Type: Spontaneous
  Country: DE (occurrence: DE)
  Receive Date: 20211217
  Receipt Date: 20220330
  Transmission Date: 20220423
  Serious: Yes (Other)
  Sender: FDA-Public Use
  Company Number: DE-VERTEX PHARMACEUTICALS-2021-019517

PATIENT
  Sex: Female

DRUGS (4)
  1. ELEXACAFTOR\IVACAFTOR\TEZACAFTOR [Suspect]
     Active Substance: ELEXACAFTOR\IVACAFTOR\TEZACAFTOR
     Indication: Cystic fibrosis
     Dosage: 2 TABS AM
     Route: 048
     Dates: start: 20201012
  2. ELEXACAFTOR\IVACAFTOR\TEZACAFTOR [Suspect]
     Active Substance: ELEXACAFTOR\IVACAFTOR\TEZACAFTOR
     Dosage: 2 TABS PM
     Route: 048
  3. KALYDECO [Suspect]
     Active Substance: IVACAFTOR
     Indication: Cystic fibrosis
     Dosage: 1 TAB PM
     Route: 048
     Dates: start: 20201012
  4. KALYDECO [Suspect]
     Active Substance: IVACAFTOR
     Dosage: 1 TAB AM
     Route: 048

REACTIONS (6)
  - Suicidal ideation [Not Recovered/Not Resolved]
  - Insomnia [Recovering/Resolving]
  - Anxiety [Recovering/Resolving]
  - Abnormal dreams [Recovering/Resolving]
  - Listless [Recovering/Resolving]
  - Depressed mood [Recovering/Resolving]
